FAERS Safety Report 18517465 (Version 1)
Quarter: 2020Q4

REPORT INFORMATION
  Report Type: Spontaneous
  Country: US (occurrence: US)
  Receive Date: 20201118
  Receipt Date: 20201118
  Transmission Date: 20210114
  Serious: Yes (Death)
  Sender: FDA-Public Use
  Company Number: None

PATIENT
  Age: 62 Year
  Sex: Male

DRUGS (1)
  1. APIXABAN [Suspect]
     Active Substance: APIXABAN

REACTIONS (7)
  - Syncope [None]
  - Respiratory failure [None]
  - Pericardial effusion [None]
  - Hypotension [None]
  - Hypothermia [None]
  - Chest pain [None]
  - Cardiac tamponade [None]

NARRATIVE: CASE EVENT DATE: 20200817
